FAERS Safety Report 18858940 (Version 1)
Quarter: 2021Q1

REPORT INFORMATION
  Report Type: Spontaneous
  Country: US (occurrence: US)
  Receive Date: 20210207
  Receipt Date: 20210207
  Transmission Date: 20210420
  Serious: Yes (Hospitalization, Disabling, Other)
  Sender: FDA-Public Use
  Company Number: None

PATIENT
  Age: 35 Year
  Sex: Female
  Weight: 74.25 kg

DRUGS (6)
  1. LOESTRIN BIRTH CONTROL [Concomitant]
  2. ADDERALL XR [Suspect]
     Active Substance: AMPHETAMINE ASPARTATE\AMPHETAMINE SULFATE\DEXTROAMPHETAMINE SACCHARATE\DEXTROAMPHETAMINE SULFATE
     Indication: DEPRESSION
     Dosage: ?          OTHER FREQUENCY:IT WAS A COCKTAIL;?
     Route: 048
  3. GABAPENTIN. [Suspect]
     Active Substance: GABAPENTIN
  4. BUPROPION XL [Suspect]
     Active Substance: BUPROPION
  5. PROGESTERONE. [Concomitant]
     Active Substance: PROGESTERONE
  6. ADDERALL XR [Suspect]
     Active Substance: AMPHETAMINE ASPARTATE\AMPHETAMINE SULFATE\DEXTROAMPHETAMINE SACCHARATE\DEXTROAMPHETAMINE SULFATE
     Indication: ATTENTION DEFICIT HYPERACTIVITY DISORDER
     Dosage: ?          OTHER FREQUENCY:IT WAS A COCKTAIL;?
     Route: 048

REACTIONS (6)
  - Loss of libido [None]
  - Mania [None]
  - Female reproductive tract disorder [None]
  - Anger [None]
  - Abnormal behaviour [None]
  - Menstruation irregular [None]

NARRATIVE: CASE EVENT DATE: 20200310
